FAERS Safety Report 5060328-1 (Version None)
Quarter: 2006Q3

REPORT INFORMATION
  Report Type: 
  Country: None (occurrence: None)
  Receive Date: 20060718
  Receipt Date: 20060629
  Transmission Date: 20061208
  Serious: Yes (Disabling, Other)
  Sender: FDA-Public Use
  Company Number: US_000949103

PATIENT
  Age: 39 Year
  Sex: Male
  Weight: 79.5 kg

DRUGS (7)
  1. HUMALOG [Suspect]
     Indication: DIABETES MELLITUS
     Dosage: UNK, AS NEEDED, SUBCUTANEOUS
     Route: 058
     Dates: start: 19980101
  2. HUMULIN(HUMAN INSULIN (RDNA ORIGIN) NPH UNKNOWN FORMULATION) UNKNOWN [Suspect]
     Indication: DIABETES MELLITUS
     Dosage: 10 U, 2/D, SUBCUTANEOUS
     Route: 058
     Dates: start: 19980101, end: 20040816
  3. INSULIN(INSULIN, ANIMAL) VIAL [Suspect]
     Indication: DIABETES MELLITUS
     Dates: start: 19640101
  4. HUMULIN R [Suspect]
     Indication: DIABETES MELLITUS
     Dosage: UNK, AS NEEDED, SUBCUTANEOUS
     Route: 058
  5. DEPAKOTE [Concomitant]
  6. NOVOLIN (INSULIN HUMAN INJECTIO, ISOPHANE) [Concomitant]
  7. LANTUS [Concomitant]

REACTIONS (8)
  - AGITATION [None]
  - BLOOD GLUCOSE FLUCTUATION [None]
  - CEREBRAL DISORDER [None]
  - CONVULSION [None]
  - EPILEPSY [None]
  - FATIGUE [None]
  - SCAR [None]
  - STRESS [None]
